FAERS Safety Report 7979157-1 (Version None)
Quarter: 2011Q4

REPORT INFORMATION
  Report Type: 
  Country: None (occurrence: None)
  Receive Date: 20111213
  Receipt Date: 20111213
  Transmission Date: 20120403
  Serious: Yes (Disabling)
  Sender: FDA-Public Use
  Company Number: None

PATIENT
  Sex: Female
  Weight: 68.0396 kg

DRUGS (1)
  1. NOVOLIN 70/30 [Suspect]
     Indication: DIABETES MELLITUS
     Dosage: 15 UNITS 3 X DAILY
     Dates: start: 20100901, end: 20111101

REACTIONS (5)
  - EYE PAIN [None]
  - INTRAOCULAR PRESSURE INCREASED [None]
  - RENAL PAIN [None]
  - PRODUCT QUALITY ISSUE [None]
  - EAR DISORDER [None]
